FAERS Safety Report 9822455 (Version 1)
Quarter: 2014Q1

REPORT INFORMATION
  Report Type: Spontaneous
  Country: US (occurrence: US)
  Receive Date: 20140116
  Receipt Date: 20140116
  Transmission Date: 20141002
  Serious: No
  Sender: FDA-Public Use
  Company Number: US-ORAPHARMA-20110208124

PATIENT
  Age: 51 Year
  Sex: Female

DRUGS (1)
  1. ARESTIN [Suspect]
     Indication: GINGIVITIS
     Route: 065
     Dates: start: 20110215

REACTIONS (2)
  - Localised oedema [Not Recovered/Not Resolved]
  - Pyrexia [Not Recovered/Not Resolved]
